FAERS Safety Report 7636446-8 (Version None)
Quarter: 2011Q3

REPORT INFORMATION
  Report Type: 
  Country: None (occurrence: None)
  Receive Date: 20110719
  Receipt Date: 20110704
  Transmission Date: 20111222
  Serious: Yes (Disabling)
  Sender: FDA-Public Use
  Company Number: 2011MA008511

PATIENT
  Age: 54 Year
  Sex: Female

DRUGS (9)
  1. OXYBUTON [Concomitant]
  2. BACLOFEN [Concomitant]
  3. OPTIFLO [Concomitant]
  4. TIZANIDINE HCL [Suspect]
     Indication: ILL-DEFINED DISORDER
  5. RAMIPRIL [Concomitant]
  6. AMLODIPINE BESYLATE [Concomitant]
  7. ACETAMINOPHEN AND CODEINE PHOSPHATE [Concomitant]
  8. CLONAZEPAM [Concomitant]
  9. INSTILLAGEL [Concomitant]

REACTIONS (2)
  - MUSCLE SPASMS [None]
  - CONDITION AGGRAVATED [None]
